FAERS Safety Report 21125427 (Version 1)
Quarter: 2022Q3

REPORT INFORMATION
  Report Type: Spontaneous
  Country: IT (occurrence: IT)
  Receive Date: 20220725
  Receipt Date: 20220725
  Transmission Date: 20221027
  Serious: Yes (Hospitalization)
  Sender: FDA-Public Use
  Company Number: IT-AstraZeneca-2022A249390

PATIENT
  Age: 85 Year
  Sex: Male

DRUGS (3)
  1. RAMIPRIL [Suspect]
     Active Substance: RAMIPRIL
     Indication: Chronic kidney disease
     Dosage: UNK
     Route: 048
  2. RAMIPRIL [Suspect]
     Active Substance: RAMIPRIL
     Indication: Hypertension
  3. FUROSEMIDE [Concomitant]
     Active Substance: FUROSEMIDE
     Dosage: UNK
     Route: 065

REACTIONS (5)
  - Pleural effusion [Unknown]
  - Dyspnoea exertional [Unknown]
  - Blood creatinine increased [Unknown]
  - Orthopnoea [Unknown]
  - Iron deficiency [Unknown]
